FAERS Safety Report 7308338-5 (Version None)
Quarter: 2011Q1

REPORT INFORMATION
  Report Type: 
  Country: None (occurrence: None)
  Receive Date: 20110223
  Receipt Date: 20110216
  Transmission Date: 20110831
  Serious: Yes (Disabling)
  Sender: FDA-Public Use
  Company Number: B0697518A

PATIENT
  Sex: Male

DRUGS (5)
  1. LISINOPRIL [Concomitant]
  2. SYNTARIS [Concomitant]
  3. OMEPRAZOLE [Concomitant]
  4. SERETIDE [Concomitant]
  5. WELLBUTRIN [Suspect]
     Indication: DEPRESSION
     Dosage: 150MG PER DAY
     Route: 065
     Dates: start: 20110118

REACTIONS (8)
  - THROAT IRRITATION [None]
  - VERTIGO [None]
  - FEELING ABNORMAL [None]
  - PAINFUL RESPIRATION [None]
  - TERMINAL INSOMNIA [None]
  - DIZZINESS [None]
  - COUGH [None]
  - SLEEP DISORDER [None]
